FAERS Safety Report 6914856-1 (Version None)
Quarter: 2010Q3

REPORT INFORMATION
  Report Type: 
  Country: None (occurrence: None)
  Receive Date: 20100804
  Receipt Date: 20100628
  Transmission Date: 20110219
  Serious: No
  Sender: FDA-Public Use
  Company Number: C-10-031/032

PATIENT
  Sex: Female

DRUGS (1)
  1. KALEXATE [Suspect]
     Dosage: 15-60 GMS DAILY, ORAL
     Route: 048

REACTIONS (1)
  - VOMITING [None]
